FAERS Safety Report 19963416 (Version 1)
Quarter: 2021Q4

REPORT INFORMATION
  Report Type: Spontaneous
  Country: US (occurrence: US)
  Receive Date: 20211014
  Receipt Date: 20211014
  Transmission Date: 20220303
  Serious: No
  Sender: FDA-Public Use
  Company Number: None

PATIENT
  Age: 39 Year
  Sex: Male

DRUGS (2)
  1. TAFINLAR [Suspect]
     Active Substance: DABRAFENIB MESYLATE
     Indication: Lip and/or oral cavity cancer
     Route: 048
     Dates: start: 20210714
  2. MEKINIST [Suspect]
     Active Substance: TRAMETINIB DIMETHYL SULFOXIDE
     Indication: Lip and/or oral cavity cancer
     Route: 048
     Dates: start: 20210714

REACTIONS (1)
  - Asthenia [None]

NARRATIVE: CASE EVENT DATE: 20210926
